FAERS Safety Report 6757826-9 (Version None)
Quarter: 2010Q2

REPORT INFORMATION
  Report Type: 
  Country: None (occurrence: None)
  Receive Date: 20100604
  Receipt Date: 20100604
  Transmission Date: 20101027
  Serious: Yes (Life-Threatening, Hospitalization)
  Sender: FDA-Public Use
  Company Number: None

PATIENT
  Age: 86 Year
  Sex: Female
  Weight: 47.5 kg

DRUGS (1)
  1. LISINOPRIL AND HYDROCHLOROTHIAZIDE [Suspect]
     Indication: HYPERTENSION
     Dosage: 10MG/12.5MG DAILY PO
     Route: 048

REACTIONS (4)
  - DYSPNOEA [None]
  - LIP SWELLING [None]
  - SPEECH DISORDER [None]
  - SWOLLEN TONGUE [None]
